FAERS Safety Report 13905359 (Version 1)
Quarter: 2017Q3

REPORT INFORMATION
  Report Type: Spontaneous
  Country: US (occurrence: None)
  Receive Date: 20170821
  Receipt Date: 20170821
  Transmission Date: 20171127
  Serious: No
  Sender: FDA-Public Use
  Company Number: None

PATIENT
  Age: 61 Year
  Sex: Female

DRUGS (1)
  1. IBRANCE [Suspect]
     Active Substance: PALBOCICLIB
     Dosage: 75MG 1 CA[S QD X PO
     Route: 048

REACTIONS (3)
  - Rectal ulcer [None]
  - Vulval ulceration [None]
  - Agitation [None]

NARRATIVE: CASE EVENT DATE: 20170821
